FAERS Safety Report 5468698-7 (Version None)
Quarter: 2007Q3

REPORT INFORMATION
  Report Type: 
  Country: None (occurrence: None)
  Receive Date: 20070926
  Receipt Date: 20070918
  Transmission Date: 20080115
  Serious: Yes (Hospitalization, Other)
  Sender: FDA-Public Use
  Company Number: US-PFIZER INC-2007065515

PATIENT
  Sex: Male

DRUGS (2)
  1. LYRICA [Suspect]
  2. SKELAXIN [Suspect]

REACTIONS (2)
  - ACUTE LYMPHOCYTIC LEUKAEMIA [None]
  - PANCYTOPENIA [None]
